FAERS Safety Report 5343157-0 (Version None)
Quarter: 2007Q2

REPORT INFORMATION
  Report Type: 
  Country: None (occurrence: None)
  Receive Date: 20070416
  Receipt Date: 20070226
  Transmission Date: 20071010
  Serious: No
  Sender: FDA-Public Use
  Company Number: 2007SP000636

PATIENT
  Age: 55 Year
  Sex: Male
  Weight: 158.759 kg

DRUGS (13)
  1. LUNESTA [Suspect]
     Indication: INSOMNIA
     Dosage: 3 MG; HS; ORAL
     Route: 048
     Dates: start: 20060101, end: 20070101
  2. LUNESTA [Suspect]
     Indication: INSOMNIA
     Dosage: 3 MG; HS; ORAL
     Route: 048
     Dates: start: 20070201
  3. PROZAC [Concomitant]
  4. VALSARTAN [Concomitant]
  5. MAXZIDE [Concomitant]
  6. RISPERDAL [Concomitant]
  7. SIMVASTATIN [Concomitant]
  8. INSULIN [Concomitant]
  9. ALAVERT [Concomitant]
  10. IRON [Concomitant]
  11. FOSAMAX [Concomitant]
  12. MOTRIN [Concomitant]
  13. SEROQUEL [Concomitant]

REACTIONS (2)
  - DYSGEUSIA [None]
  - INSOMNIA [None]
